FAERS Safety Report 14988379 (Version 1)
Quarter: 2018Q2

REPORT INFORMATION
  Report Type: Report from Study
  Country: IT (occurrence: IT)
  Receive Date: 20180608
  Receipt Date: 20180608
  Transmission Date: 20180711
  Serious: Yes (Other)
  Sender: FDA-Public Use
  Company Number: IT-TEVA-2018-IT-904131

PATIENT
  Age: 54 Year
  Sex: Male

DRUGS (4)
  1. RITUXIMAB. [Suspect]
     Active Substance: RITUXIMAB
     Indication: RETROPERITONEAL FIBROSIS
     Dosage: 375MG/M2- 4 WEEKLY RITUXIMAB PLUS TWO MORE DOSES OF RITUXIMAB 1 AND 2 MONTHS FOLLOWING THE LAST W...
     Route: 050
  2. PREDNISONE. [Suspect]
     Active Substance: PREDNISONE
     Indication: RETROPERITONEAL FIBROSIS
     Dosage: .8 MG/KG DAILY; GRADUALLY TAPERED UNTIL DISCONTINUATION IN 4 MONTHS
     Route: 048
  3. CYCLOPHOSPHAMIDE. [Suspect]
     Active Substance: CYCLOPHOSPHAMIDE
     Indication: RETROPERITONEAL FIBROSIS
     Dosage: 2 PULSES OF 500-750 MG CYCLOPHOSPHAMIDE ON DAYS 1 AND 15
     Route: 042
  4. METHYLPREDNISOLONE. [Suspect]
     Active Substance: METHYLPREDNISOLONE
     Indication: RETROPERITONEAL FIBROSIS
     Dosage: 3 PULSES OF 15MG/KG METHYLPREDNISOLONE
     Route: 042

REACTIONS (1)
  - Pneumonia [Unknown]
